FAERS Safety Report 21021387 (Version 1)
Quarter: 2022Q2

REPORT INFORMATION
  Report Type: Spontaneous
  Country: NL (occurrence: NL)
  Receive Date: 20220629
  Receipt Date: 20220629
  Transmission Date: 20220721
  Serious: Yes (Hospitalization, Other)
  Sender: FDA-Public Use
  Company Number: NL-MACLEODS PHARMACEUTICALS US LTD-MAC2022036245

PATIENT

DRUGS (4)
  1. ARIPIPRAZOLE [Suspect]
     Active Substance: ARIPIPRAZOLE
     Indication: Schizophrenia
     Dosage: 15 MILLIGRAM, QD
     Route: 065
  2. ARIPIPRAZOLE [Suspect]
     Active Substance: ARIPIPRAZOLE
     Dosage: 30 MILLIGRAM QD, INCREASED TO
     Route: 065
  3. OLANZAPINE [Suspect]
     Active Substance: OLANZAPINE
     Indication: Schizophrenia
     Dosage: 10 MILLIGRAM, QD, FOR A LONG TIME
     Route: 065
  4. OLANZAPINE [Suspect]
     Active Substance: OLANZAPINE
     Dosage: 20 MILLIGRAM QD (REINTRODUCE)
     Route: 065

REACTIONS (10)
  - Compartment syndrome [Unknown]
  - Suicide attempt [Unknown]
  - Poisoning [Unknown]
  - Intentional overdose [Unknown]
  - Somnolence [Unknown]
  - Fatigue [Unknown]
  - Restlessness [Unknown]
  - Discomfort [Unknown]
  - Sleep disorder [Unknown]
  - Obesity [Unknown]
